FAERS Safety Report 10190856 (Version 1)
Quarter: 2014Q2

REPORT INFORMATION
  Report Type: Spontaneous
  Country: ES (occurrence: ES)
  Receive Date: 20140523
  Receipt Date: 20140523
  Transmission Date: 20141212
  Serious: Yes (Other)
  Sender: FDA-Public Use
  Company Number: PHHY2014ES061711

PATIENT
  Age: 52 Year
  Sex: Male

DRUGS (2)
  1. ANAFRANIL [Suspect]
     Dosage: 225 MG, DAILY
     Route: 048
     Dates: start: 20130709
  2. OLANZAPINE [Interacting]
     Indication: SCHIZOPHRENIA, DISORGANISED TYPE
     Dosage: 30 MG, DAILY
     Route: 048
     Dates: start: 20131105, end: 20140121

REACTIONS (2)
  - Drug interaction [Recovered/Resolved]
  - Electrocardiogram QT prolonged [Recovered/Resolved]
